FAERS Safety Report 7594310-7 (Version None)
Quarter: 2011Q3

REPORT INFORMATION
  Report Type: 
  Country: None (occurrence: None)
  Receive Date: 20110706
  Receipt Date: 20110627
  Transmission Date: 20111222
  Serious: Yes (Other)
  Sender: FDA-Public Use
  Company Number: US-ASTRAZENECA-2011SE38734

PATIENT
  Sex: Male

DRUGS (5)
  1. CRESTOR [Suspect]
     Route: 048
  2. CLINORIL [Concomitant]
  3. DIAZEPAM [Concomitant]
  4. VERPAMIL HCL [Concomitant]
  5. TYLENOL W/ CODEINE [Concomitant]

REACTIONS (5)
  - WEIGHT INCREASED [None]
  - DEPRESSION [None]
  - ROAD TRAFFIC ACCIDENT [None]
  - INTRACRANIAL HYPOTENSION [None]
  - CERVICAL VERTEBRAL FRACTURE [None]
